FAERS Safety Report 6911913-0 (Version None)
Quarter: 2010Q3

REPORT INFORMATION
  Report Type: 
  Country: None (occurrence: None)
  Receive Date: 20100806
  Receipt Date: 20070918
  Transmission Date: 20110219
  Serious: No
  Sender: FDA-Public Use
  Company Number: US-PFIZER INC-2007067338

PATIENT
  Sex: Male
  Weight: 65 kg

DRUGS (7)
  1. VFEND [Suspect]
     Indication: PNEUMONIA FUNGAL
     Route: 048
     Dates: start: 20070601
  2. ACETYLSALICYLIC ACID SRT [Concomitant]
  3. GEMFIBROZIL [Concomitant]
  4. ATENOLOL [Concomitant]
  5. LEVOTHYROXINE [Concomitant]
     Indication: THYROID DISORDER
  6. ALBUTEROL [Concomitant]
     Route: 055
  7. IPRATROPIUM BROMIDE [Concomitant]
     Route: 055

REACTIONS (1)
  - ALOPECIA [None]
